FAERS Safety Report 26015974 (Version 4)
Quarter: 2025Q4

REPORT INFORMATION
  Report Type: Spontaneous
  Country: CH (occurrence: CH)
  Receive Date: 20251109
  Receipt Date: 20251218
  Transmission Date: 20260118
  Serious: Yes (Hospitalization)
  Sender: BIOGEN
  Company Number: CH-BIOGEN-2089214

PATIENT
  Age: 23 Year
  Sex: Female
  Weight: 82.2 kg

DRUGS (6)
  1. SKYCLARYS [Suspect]
     Active Substance: OMAVELOXOLONE
     Indication: Friedreich^s ataxia
     Dosage: 50 MG, 3-0-0
     Dates: start: 202506, end: 20250829
  2. Insulin aspart 100 IU | 3.216 mg [Concomitant]
     Indication: Product used for unknown indication
     Dosage: INSULIN ASPART 100 IU | 3.216 MG ACCORDING TO PLAN
  3. FOLIC ACID [Concomitant]
     Active Substance: FOLIC ACID
     Indication: Product used for unknown indication
  4. DULAGLUTIDE [Concomitant]
     Active Substance: DULAGLUTIDE
     Indication: Product used for unknown indication
     Dosage: 5 MG, 1-0-0
     Dates: start: 202507
  5. METFORMIN [Concomitant]
     Active Substance: METFORMIN HYDROCHLORIDE
     Indication: Product used for unknown indication
  6. INSULIN DEGLUDEC [Concomitant]
     Active Substance: INSULIN DEGLUDEC
     Indication: Product used for unknown indication
     Dosage: 0-0-0-10 UNIT

REACTIONS (2)
  - Hypertrophic cardiomyopathy [Unknown]
  - Heart failure with reduced ejection fraction [Unknown]

NARRATIVE: CASE EVENT DATE: 20250601
